FAERS Safety Report 7129967-8 (Version None)
Quarter: 2010Q4

REPORT INFORMATION
  Report Type: 
  Country: None (occurrence: None)
  Receive Date: 20101130
  Receipt Date: 20101126
  Transmission Date: 20110411
  Serious: Yes (Other)
  Sender: FDA-Public Use
  Company Number: DE-BRISTOL-MYERS SQUIBB COMPANY-15407935

PATIENT
  Age: 40 Year
  Sex: Male

DRUGS (2)
  1. ABILIFY [Suspect]
     Dosage: ABILIFY WAS UP-TITRATED TO 30MG
  2. AMISULPRIDE [Concomitant]

REACTIONS (1)
  - DELUSION [None]
